FAERS Safety Report 8295590-5 (Version None)
Quarter: 2012Q2

REPORT INFORMATION
  Report Type: 
  Country: None (occurrence: None)
  Receive Date: 20120416
  Receipt Date: 20120412
  Transmission Date: 20120825
  Serious: Yes (Death, Hospitalization)
  Sender: FDA-Public Use
  Company Number: ADR-2011-9918

PATIENT
  Sex: Male

DRUGS (1)
  1. LIORESAL [Suspect]
     Indication: MUSCLE SPASTICITY
     Dosage: DAILY, INTRATH
     Route: 037

REACTIONS (8)
  - MUSCLE SPASMS [None]
  - OVERDOSE [None]
  - BODY TEMPERATURE INCREASED [None]
  - DEVICE CONNECTION ISSUE [None]
  - CLONUS [None]
  - DEVICE MATERIAL ISSUE [None]
  - COMA [None]
  - MENINGITIS [None]
